FAERS Safety Report 5238295-7 (Version None)
Quarter: 2007Q1

REPORT INFORMATION
  Report Type: 
  Country: None (occurrence: None)
  Receive Date: 20070215
  Receipt Date: 20070206
  Transmission Date: 20070707
  Serious: Yes (Death, Other)
  Sender: FDA-Public Use
  Company Number: PHBS2007TR02390

PATIENT
  Age: 5 Month
  Sex: Male

DRUGS (13)
  1. METHOTREXATE [Suspect]
     Indication: BONE MARROW TRANSPLANT
     Dosage: 10 MG/M2/D
     Route: 065
  2. METHOTREXATE [Suspect]
     Dosage: 15 MG/M2
     Route: 065
  3. BUSULFEX [Concomitant]
     Indication: BONE MARROW TRANSPLANT
     Dosage: 3.2 MG/KG/D
     Route: 042
  4. CYCLOPHOSPHAMIDE [Concomitant]
     Indication: BONE MARROW TRANSPLANT
     Dosage: 50 MG/KG/D
     Route: 042
  5. CYCLOSPORINE [Suspect]
     Indication: BONE MARROW TRANSPLANT
     Dosage: 3 MG/KG/D
     Route: 042
     Dates: start: 20050101
  6. IMMUNOGLOBULINS [Concomitant]
     Dosage: 400 MG/KG, QW
     Route: 042
  7. FLUCONAZOLE [Concomitant]
  8. ACYCLOVIR [Concomitant]
  9. METRONIDAZOLE [Concomitant]
  10. COTRIMOXAZOL ^ALIUD^ [Concomitant]
  11. URSODIOL [Concomitant]
  12. HEPARIN [Concomitant]
  13. NEUPOGEN [Concomitant]
     Dosage: 5 UG/KG/D
     Route: 065

REACTIONS (9)
  - ACIDOSIS [None]
  - DIARRHOEA [None]
  - FEBRILE NEUTROPENIA [None]
  - GRAFT VERSUS HOST DISEASE [None]
  - HEPATIC ENZYME INCREASED [None]
  - HYPERKERATOSIS [None]
  - JAUNDICE [None]
  - RASH ERYTHEMATOUS [None]
  - SKIN LESION [None]
